FAERS Safety Report 18537895 (Version 1)
Quarter: 2020Q4

REPORT INFORMATION
  Report Type: Spontaneous
  Country: DE (occurrence: DE)
  Receive Date: 20201124
  Receipt Date: 20201124
  Transmission Date: 20210114
  Serious: Yes (Hospitalization, Other)
  Sender: FDA-Public Use
  Company Number: DE-AUROBINDO-AUR-APL-2019-069512

PATIENT
  Age: 60 Year
  Sex: Female
  Weight: 73 kg

DRUGS (17)
  1. OXALIPLATIN. [Suspect]
     Active Substance: OXALIPLATIN
     Dosage: 1572 MILLIGRAM, CYCLICAL (QCY)
     Route: 042
     Dates: start: 20191009, end: 20191009
  2. LEUCOVORIN. [Suspect]
     Active Substance: LEUCOVORIN
     Indication: COLORECTAL CANCER METASTATIC
     Dosage: 647.5 MILLIGRAM, CYCLICAL, (QCY)
     Route: 042
     Dates: start: 20190814, end: 20190814
  3. AFLIBERCEPT [Suspect]
     Active Substance: AFLIBERCEPT
     Indication: COLORECTAL CANCER METASTATIC
     Dosage: 300 MILLIGRAM, CYCLICAL (QCY)
     Route: 042
     Dates: start: 20190814, end: 20190814
  4. AFLIBERCEPT [Suspect]
     Active Substance: AFLIBERCEPT
     Dosage: 300 MILLIGRAM, CYCLICAL (QCY)
     Route: 042
     Dates: start: 20191009
  5. 5-FU [Suspect]
     Active Substance: FLUOROURACIL
     Dosage: 5180 MILLIGRAM, CYCLICAL
     Route: 042
     Dates: start: 20191009
  6. 5-FU [Suspect]
     Active Substance: FLUOROURACIL
     Dosage: 710 MILLIGRAM, CYCLICAL (QCY)
     Route: 042
     Dates: start: 20191009, end: 20191009
  7. AMLODIPINE [Concomitant]
     Active Substance: AMLODIPINE BESYLATE
     Indication: PRODUCT USED FOR UNKNOWN INDICATION
     Dosage: 5 MILLIGRAM, ONCE A DAY
     Route: 065
     Dates: start: 20190821
  8. LEUCOVORIN. [Suspect]
     Active Substance: LEUCOVORIN
     Dosage: 647.5 MILLIGRAM, CYCLICAL, (QCY)
     Route: 042
     Dates: start: 20191009
  9. 5-FU [Suspect]
     Active Substance: FLUOROURACIL
     Dosage: 4440 MILLIGRAM, CYCLICAL (QCY)
     Route: 040
     Dates: start: 20191009, end: 20191009
  10. 5-FU [Suspect]
     Active Substance: FLUOROURACIL
     Dosage: 4440 MILLIGRAM, CYCLICAL (QCY)
     Route: 042
     Dates: start: 20190814, end: 20190814
  11. OXALIPLATIN. [Suspect]
     Active Substance: OXALIPLATIN
     Indication: COLORECTAL CANCER METASTATIC
     Dosage: 157.25 MILLIGRAM, CYCLICAL
     Route: 042
     Dates: start: 20190814, end: 20190814
  12. OXALIPLATIN. [Suspect]
     Active Substance: OXALIPLATIN
     Dosage: 157.25 MILLIGRAM, CYCLICAL
     Route: 042
     Dates: start: 20191009
  13. HCT [Concomitant]
     Active Substance: HYDROCHLOROTHIAZIDE
     Indication: PRODUCT USED FOR UNKNOWN INDICATION
     Dosage: 25 MILLIGRAM, ONCE A DAY
     Route: 065
     Dates: start: 20190827
  14. OXALIPLATIN. [Suspect]
     Active Substance: OXALIPLATIN
     Dosage: 1572 MILLIGRAM, CYCLICAL (QCY)
     Route: 042
     Dates: start: 20190814, end: 20190814
  15. CANDESARTAN. [Concomitant]
     Active Substance: CANDESARTAN
     Indication: PRODUCT USED FOR UNKNOWN INDICATION
     Dosage: 16 MILLIGRAM, ONCE A DAY
     Route: 065
     Dates: start: 2015
  16. 5-FU [Suspect]
     Active Substance: FLUOROURACIL
     Indication: COLORECTAL CANCER METASTATIC
     Dosage: 5180 MILLIGRAM, CYCLICAL
     Route: 042
     Dates: start: 20190814, end: 20190814
  17. 5-FU [Suspect]
     Active Substance: FLUOROURACIL
     Dosage: 710 MILLIGRAM, CYCLICAL (QCY)
     Route: 040
     Dates: start: 20190814, end: 20190814

REACTIONS (3)
  - Blood pressure increased [Unknown]
  - Embolism [Recovered/Resolved]
  - Hypertension [Recovered/Resolved]

NARRATIVE: CASE EVENT DATE: 20191009
